FAERS Safety Report 13338826 (Version 1)
Quarter: 2017Q1

REPORT INFORMATION
  Report Type: Spontaneous
  Country: GB (occurrence: GB)
  Receive Date: 20170315
  Receipt Date: 20170315
  Transmission Date: 20170428
  Serious: Yes (Other)
  Sender: FDA-Public Use
  Company Number: GB-MYLANLABS-2017M1016022

PATIENT

DRUGS (2)
  1. OVESTIN [Concomitant]
     Active Substance: ESTRIOL
  2. CLARITHROMYCIN MYLAN [Suspect]
     Active Substance: CLARITHROMYCIN
     Indication: SINUSITIS
     Route: 048
     Dates: start: 20170217

REACTIONS (5)
  - Dry throat [Recovered/Resolved with Sequelae]
  - Flatulence [Recovered/Resolved]
  - Tongue discolouration [Unknown]
  - Dysgeusia [Recovering/Resolving]
  - Breath odour [Unknown]

NARRATIVE: CASE EVENT DATE: 20170218
